FAERS Safety Report 4620811-7 (Version None)
Quarter: 2005Q2

REPORT INFORMATION
  Report Type: 
  Country: None (occurrence: None)
  Receive Date: 20050315
  Receipt Date: 20050126
  Transmission Date: 20051028
  Serious: No
  Sender: FDA-Public Use
  Company Number: US-YAMANOUCHI-YPA20050047

PATIENT
  Age: 76 Year
  Sex: Male
  Weight: 74.8435 kg

DRUGS (8)
  1. VESICARE [Suspect]
     Indication: BLADDER DISORDER
     Dosage: 5 MG QD PO
     Route: 048
     Dates: start: 20050121
  2. PEPTO-BISMOL [Suspect]
     Indication: NAUSEA
     Dosage: 8 DF PER24H, PO
     Route: 048
     Dates: start: 20050124, end: 20050125
  3. SYNTHROID [Concomitant]
  4. ISOSORBIDE [Concomitant]
  5. ZOCOR [Concomitant]
  6. ASPIRIN [Concomitant]
  7. EVENING PRIMOSE [Concomitant]
  8. MEGA NRG [Concomitant]

REACTIONS (5)
  - CONSTIPATION [None]
  - DIARRHOEA [None]
  - DRY MOUTH [None]
  - FAECES DISCOLOURED [None]
  - NAUSEA [None]
